FAERS Safety Report 22392483 (Version 3)
Quarter: 2024Q2

REPORT INFORMATION
  Report Type: Spontaneous
  Country: US (occurrence: US)
  Receive Date: 20230601
  Receipt Date: 20240619
  Transmission Date: 20240716
  Serious: No
  Sender: FDA-Public Use
  Company Number: US-SA-SAC20230526000864

PATIENT
  Age: 59 Year
  Sex: Female
  Weight: 90.71 kg

DRUGS (1)
  1. DUPIXENT [Suspect]
     Active Substance: DUPILUMAB
     Indication: Dermatitis atopic
     Dosage: 300 MG, QOW
     Route: 058
     Dates: start: 20221222

REACTIONS (5)
  - Skin discomfort [Not Recovered/Not Resolved]
  - Infection [Not Recovered/Not Resolved]
  - Stress [Unknown]
  - Rash [Recovered/Resolved]
  - Rash [Unknown]
